FAERS Safety Report 12578791 (Version 3)
Quarter: 2016Q3

REPORT INFORMATION
  Report Type: Spontaneous
  Country: BR (occurrence: BR)
  Receive Date: 20160721
  Receipt Date: 20160805
  Transmission Date: 20161109
  Serious: Yes (Other)
  Sender: FDA-Public Use
  Company Number: BR-ABBVIE-16P-020-1681860-00

PATIENT
  Age: 67 Year
  Sex: Male
  Weight: 68 kg

DRUGS (10)
  1. SECOTEX [Concomitant]
     Active Substance: TAMSULOSIN
  2. VITAMIN D [Concomitant]
     Active Substance: CHOLECALCIFEROL
     Indication: PRODUCT USED FOR UNKNOWN INDICATION
     Dates: start: 2016
  3. ANCORON [Concomitant]
     Active Substance: AMIODARONE HYDROCHLORIDE
     Indication: ATRIAL FIBRILLATION
     Dosage: DAILY DOSE: 1 TABLET, MORNING
  4. ASPIRINA PREVENT [Concomitant]
     Active Substance: ASPIRIN
     Indication: ATRIAL FIBRILLATION
     Dosage: DAILY DOSE: 1 TABLET; AT NIGHT
  5. SECOTEX [Concomitant]
     Active Substance: TAMSULOSIN
     Indication: PROSTATIC DISORDER
     Dates: start: 2009
  6. ACETYLCYSTEIN [Concomitant]
     Active Substance: ACETYLCYSTEINE
     Indication: PRODUCT USED FOR UNKNOWN INDICATION
     Dosage: ONE ENVELOPE ONCE A DAY FOR 10 DAYS
     Route: 048
  7. NASONEX [Concomitant]
     Active Substance: MOMETASONE FUROATE
     Indication: PRODUCT USED FOR UNKNOWN INDICATION
     Dosage: ONE PUFF IN EACH NOSTRIL EVERY 12 HOURS, FOR 30 DAYS, TOPIC USE
     Route: 061
  8. RITMONORM [Concomitant]
     Active Substance: PROPAFENONE HYDROCHLORIDE
     Indication: ATRIAL FIBRILLATION
     Dosage: DAILY DOSE: 2 TABLET; MORNING/ NIGHT
  9. KLARICID UD [Suspect]
     Active Substance: CLARITHROMYCIN
     Indication: SINUSITIS
     Dosage: 8 TABLETS (TOTALLY DURING THERAPY)
     Route: 065
     Dates: start: 20160701, end: 20160711
  10. RINOSORO [Concomitant]
     Indication: PRODUCT USED FOR UNKNOWN INDICATION
     Dosage: 0.9%, TWO PUFFS IN EACH NOSTRILS EVERY 4 HOURS, CONTINUOUS USE, TOPIC
     Route: 061

REACTIONS (7)
  - Rash [Recovering/Resolving]
  - Allergic cough [Not Recovered/Not Resolved]
  - Wound complication [Not Recovered/Not Resolved]
  - Skin wound [Recovered/Resolved]
  - Pruritus generalised [Not Recovered/Not Resolved]
  - Blister [Not Recovered/Not Resolved]
  - Skin exfoliation [Unknown]

NARRATIVE: CASE EVENT DATE: 201607
